FAERS Safety Report 10240772 (Version 1)
Quarter: 2014Q2

REPORT INFORMATION
  Report Type: Spontaneous
  Country: US (occurrence: US)
  Receive Date: 20140617
  Receipt Date: 20140617
  Transmission Date: 20141212
  Serious: No
  Sender: FDA-Public Use
  Company Number: US-PFIZER INC-2014162685

PATIENT
  Age: 84 Year
  Sex: Male
  Weight: 83.9 kg

DRUGS (2)
  1. TOVIAZ [Suspect]
     Indication: HYPERTONIC BLADDER
     Dosage: 4 MG, UNK
     Dates: start: 2014
  2. TOVIAZ [Suspect]
     Dosage: 8 MG, UNK
     Dates: start: 201405

REACTIONS (6)
  - Drug ineffective [Unknown]
  - Dizziness [Unknown]
  - Vision blurred [Unknown]
  - Constipation [Unknown]
  - Dry mouth [Unknown]
  - Wrong technique in drug usage process [Unknown]
